FAERS Safety Report 15297859 (Version 1)
Quarter: 2018Q3

REPORT INFORMATION
  Report Type: Report from Study
  Country: ES (occurrence: ES)
  Receive Date: 20180820
  Receipt Date: 20180820
  Transmission Date: 20181010
  Serious: Yes (Death, Hospitalization)
  Sender: FDA-Public Use
  Company Number: ES-SA-2018SA218078

PATIENT
  Age: 80 Year
  Sex: Male
  Weight: 85.5 kg

DRUGS (15)
  1. FLUOROURACIL. [Suspect]
     Active Substance: FLUOROURACIL
     Indication: COLON CANCER
     Dosage: 3686 MG, QOW
     Route: 042
     Dates: start: 20180719, end: 20180719
  2. FLUOROURACIL. [Suspect]
     Active Substance: FLUOROURACIL
     Dosage: 3686 MG, QOW
     Route: 042
     Dates: start: 20180703, end: 20180713
  3. SULFENAZONE [Concomitant]
     Indication: BLOOD POTASSIUM
     Dosage: 10 MG, QD
     Route: 048
     Dates: start: 20180528
  4. FURMIDE [Concomitant]
     Indication: DIURETIC THERAPY
     Dosage: 4 MG, QD
     Route: 048
     Dates: start: 20180717
  5. FLUOROURACIL. [Suspect]
     Active Substance: FLUOROURACIL
     Dosage: 614 MG, QOW
     Route: 040
     Dates: start: 20180703, end: 20180703
  6. FOLINIC ACID [Suspect]
     Active Substance: LEUCOVORIN
     Dosage: 768 MG, QOW
     Route: 042
     Dates: start: 20180703, end: 20180703
  7. BARNIDIPINO [Concomitant]
     Active Substance: BARNIDIPINE
     Indication: HYPERTENSION
     Dosage: 20 MG, QD
     Route: 048
  8. AFLIBERCEPT [Suspect]
     Active Substance: AFLIBERCEPT
     Indication: COLON CANCER
     Dosage: 348 UNK
     Route: 041
     Dates: start: 20180717, end: 20180717
  9. FOLINIC ACID [Suspect]
     Active Substance: LEUCOVORIN
     Indication: COLON CANCER
     Dosage: 768 MG, QOW
     Route: 042
     Dates: start: 20180717, end: 20180717
  10. FLUOROURACIL. [Suspect]
     Active Substance: FLUOROURACIL
     Dosage: 614 UNK
     Route: 040
     Dates: start: 20180717, end: 20180717
  11. IRINOTECAN [Suspect]
     Active Substance: IRINOTECAN
     Dosage: 346 MG, QOW
     Route: 042
     Dates: start: 20180703, end: 20180703
  12. AFLIBERCEPT [Suspect]
     Active Substance: AFLIBERCEPT
     Dosage: 348 MG, QOW
     Route: 041
     Dates: start: 20180703, end: 20180703
  13. IRINOTECAN [Suspect]
     Active Substance: IRINOTECAN
     Indication: COLON CANCER
     Dosage: 346 MG, QOW
     Route: 042
     Dates: start: 20180717, end: 20180717
  14. IMIDAPRIL [Concomitant]
     Active Substance: IMIDAPRIL
     Indication: HYPERTENSION
     Dosage: 20 MG, QD
     Route: 048
  15. HYDROFERRIN [Concomitant]
     Indication: VITAMIN D
     Dosage: 2 DF, QD
     Route: 048
     Dates: start: 20170223

REACTIONS (1)
  - Intestinal ischaemia [Fatal]

NARRATIVE: CASE EVENT DATE: 20180721
